FAERS Safety Report 9970163 (Version 1)
Quarter: 2014Q1

REPORT INFORMATION
  Report Type: Spontaneous
  Country: FI (occurrence: FI)
  Receive Date: 20140306
  Receipt Date: 20140306
  Transmission Date: 20141002
  Serious: Yes (Death, Hospitalization, Other)
  Sender: FDA-Public Use
  Company Number: PHHY2013FI155622

PATIENT
  Age: 35 Year
  Sex: Female

DRUGS (1)
  1. SANDOSTATIN LAR [Suspect]
     Indication: NEUROENDOCRINE TUMOUR

REACTIONS (30)
  - Death [Fatal]
  - Hyperglycaemia [Unknown]
  - Vomiting [Unknown]
  - Diarrhoea [Unknown]
  - Condition aggravated [Recovered/Resolved]
  - Movement disorder [Recovered/Resolved]
  - Walking disability [Recovered/Resolved]
  - Fatigue [Unknown]
  - Skin discolouration [Unknown]
  - Hepatomegaly [Unknown]
  - Disease progression [Unknown]
  - Gastric disorder [Unknown]
  - Blood electrolytes abnormal [Recovered/Resolved]
  - Hypotonia [Unknown]
  - Asthenia [Unknown]
  - Adrenocortical insufficiency acute [Unknown]
  - Blood pressure decreased [Recovered/Resolved]
  - White blood cell count increased [Unknown]
  - C-reactive protein increased [Unknown]
  - Blood calcium increased [Unknown]
  - Alanine aminotransferase increased [Unknown]
  - Blood lactate dehydrogenase increased [Unknown]
  - Blood uric acid increased [Unknown]
  - Nausea [Unknown]
  - Metastases to liver [Unknown]
  - Cholestasis [Unknown]
  - Hypokalaemia [Unknown]
  - Hypercorticoidism [Unknown]
  - Thirst [Unknown]
  - Syncope [Unknown]
